FAERS Safety Report 5220007-4 (Version None)
Quarter: 2007Q1

REPORT INFORMATION
  Report Type: 
  Country: None (occurrence: None)
  Receive Date: 20070124
  Receipt Date: 20070124
  Transmission Date: 20070707
  Serious: Yes (Other)
  Sender: FDA-Public Use
  Company Number: None

PATIENT
  Age: 81 Year
  Sex: Male
  Weight: 47.9 kg

DRUGS (18)
  1. ZITHROMAX [Suspect]
  2. CODEINE PHOSPHATE AND ACETAMINOPHEN [Concomitant]
  3. RANITIDINE [Concomitant]
  4. DIPHENHYDRAMINE HCL [Concomitant]
  5. ACETAMINOPHEN AND HYDROCODONE BITARTRATE [Concomitant]
  6. IPRATROPIUM BROMIDE [Concomitant]
  7. ALBUTEROL SOLN (PREMIX) [Concomitant]
  8. ALOH/MGOH/SIMTH XTRA STRENGTH [Concomitant]
  9. FINASTERIDE [Concomitant]
  10. MILK OF MAGNESIA SUSP [Concomitant]
  11. LACTASE ENZYME [Concomitant]
  12. ACETAMINOPHEN [Concomitant]
  13. METFORMIN HCL [Concomitant]
  14. HYPROMELLOSE [Concomitant]
  15. GLIPIZIDE [Concomitant]
  16. MOXIFLOXACIN HCL [Concomitant]
  17. AZITHROMYCIN [Concomitant]
  18. CEFTRIAXONE [Concomitant]

REACTIONS (1)
  - SWELLING FACE [None]
